FAERS Safety Report 18921229 (Version 1)
Quarter: 2021Q1

REPORT INFORMATION
  Report Type: Report from Study
  Country: GB (occurrence: JP)
  Receive Date: 20210222
  Receipt Date: 20210222
  Transmission Date: 20210420
  Serious: Yes (Other)
  Sender: FDA-Public Use
  Company Number: JP-ASTELLAS-2021US006288

PATIENT
  Age: 83 Year
  Sex: Male

DRUGS (1)
  1. ERLOTINIB [Suspect]
     Active Substance: ERLOTINIB
     Indication: NON-SMALL CELL LUNG CANCER METASTATIC
     Dosage: UNK UNK, UNKNOWN FREQ (13500 MG IN TOTAL).
     Route: 048
     Dates: start: 20171006, end: 20200709

REACTIONS (9)
  - Presyncope [Recovered/Resolved]
  - Cataract [Not Recovered/Not Resolved]
  - Fall [Unknown]
  - Hyponatraemia [Not Recovered/Not Resolved]
  - Chronic kidney disease [Recovered/Resolved]
  - Hypertension [Recovered/Resolved]
  - Hemiparesis [Not Recovered/Not Resolved]
  - Renal injury [Recovered/Resolved]
  - Syncope [Recovered/Resolved]

NARRATIVE: CASE EVENT DATE: 20180302
